FAERS Safety Report 9192095 (Version 1)
Quarter: 2013Q1

REPORT INFORMATION
  Report Type: Spontaneous
  Country: US (occurrence: None)
  Receive Date: 20130326
  Receipt Date: 20130326
  Transmission Date: 20140127
  Serious: No
  Sender: FDA-Public Use
  Company Number: None

PATIENT
  Age: 59 Year
  Sex: Male
  Weight: 95.26 kg

DRUGS (1)
  1. HYDROCORDON/APAP [Suspect]
     Indication: UPPER LIMB FRACTURE
     Route: 048
     Dates: start: 20120615, end: 20130122

REACTIONS (3)
  - Product substitution issue [None]
  - Drug ineffective [None]
  - Product quality issue [None]
